FAERS Safety Report 9769266 (Version 1)
Quarter: 2013Q4

REPORT INFORMATION
  Report Type: Spontaneous
  Country: GB (occurrence: None)
  Receive Date: 20131216
  Receipt Date: 20131216
  Transmission Date: 20140711
  Serious: Yes (Other)
  Sender: FDA-Public Use
  Company Number: AUR-APL-2013-10369

PATIENT
  Age: 46 Year
  Sex: Female
  Weight: 80 kg

DRUGS (1)
  1. SUMATRIPTAN (SUMATRIPTAN) [Suspect]
     Indication: MIGRAINE
     Route: 048

REACTIONS (2)
  - Tachycardia [None]
  - Extrasystoles [None]
